FAERS Safety Report 8909256 (Version 3)
Quarter: 2013Q1

REPORT INFORMATION
  Report Type: Spontaneous
  Country: US (occurrence: None)
  Receive Date: 20121107
  Receipt Date: 20130122
  Transmission Date: 20140127
  Serious: Yes (Death, Hospitalization)
  Sender: FDA-Public Use
  Company Number: 2012-1214

PATIENT
  Age: 59 Year
  Sex: Female
  Weight: 66.23 kg

DRUGS (9)
  1. KYPROLIS [Suspect]
     Indication: PLASMA CELL MYELOMA
     Dosage: (35 MG, DAYS, 1, 2, 8, 9, 15, 16, EVERY 28 DAYS)
     Route: 042
     Dates: start: 20120905, end: 20120920
  2. DILAUDID (HYDROMORPHONE) [Concomitant]
  3. EXALGO (HYDROMORPHONE HYDROCHLORIDE) (HYDROMORPHONE HYDROCHLORIDE) [Concomitant]
  4. ALOXI (PALONOSETRON HYDROCHLORIDE) (PALONOSETRON HYDROCHLORIDE) [Concomitant]
  5. EMEND (APREPITANT) (APREPITANT) [Concomitant]
  6. DECADRON (DEXAMETHASONE) (DEXAMETHASONE) [Concomitant]
  7. BENADRYL (DIPHENHYDRAMINE HYDROCHLORIDE) (DIPHENHYDRAMINE HYDROCHLORIDE) [Concomitant]
  8. PROCRIT [Concomitant]
  9. NEUPOGEN (FILGRASTIM) (FILGRASTIM) [Concomitant]

REACTIONS (4)
  - Hepatic failure [None]
  - Blood sodium increased [None]
  - Loss of consciousness [None]
  - Hypernatraemia [None]
